FAERS Safety Report 6414383-4 (Version None)
Quarter: 2009Q4

REPORT INFORMATION
  Report Type: 
  Country: None (occurrence: None)
  Receive Date: 20091021
  Receipt Date: 20091008
  Transmission Date: 20100525
  Serious: Yes (Hospitalization)
  Sender: FDA-Public Use
  Company Number: 2009SP029676

PATIENT
  Age: 62 Year
  Sex: Male
  Weight: 80 kg

DRUGS (12)
  1. SCH 530348 (S-P) (THROMBIN-RECEPTOR ANTAGONIST (SCH 530348) [Suspect]
     Indication: ACUTE CORONARY SYNDROME
     Dosage: 40 MG; ONCE; PO; 2.5 MG; QD; PO
     Route: 048
     Dates: start: 20090916, end: 20090916
  2. SCH 530348 (S-P) (THROMBIN-RECEPTOR ANTAGONIST (SCH 530348) [Suspect]
     Indication: ACUTE CORONARY SYNDROME
     Dosage: 40 MG; ONCE; PO; 2.5 MG; QD; PO
     Route: 048
     Dates: start: 20090917
  3. PLAVIX [Suspect]
     Indication: DRUG USE FOR UNKNOWN INDICATION
  4. LORATADINE [Suspect]
     Indication: URTICARIA
     Dosage: 10 MG; PO
     Route: 048
     Dates: start: 20090927, end: 20091001
  5. BUPROPION [Concomitant]
  6. CLOPIDOGREL [Concomitant]
  7. HEPARIN SODIUM [Concomitant]
  8. ASPIRIN [Concomitant]
  9. ATENOLOL [Concomitant]
  10. ENOXIPARIN SODIUM [Concomitant]
  11. NITROGLYCERIN [Concomitant]
  12. SIMVASTATIN [Concomitant]

REACTIONS (9)
  - BASOPHIL COUNT INCREASED [None]
  - ELECTROCARDIOGRAM ST SEGMENT DEPRESSION [None]
  - ELECTROCARDIOGRAM T WAVE INVERSION [None]
  - EOSINOPHIL COUNT INCREASED [None]
  - LYMPHOCYTE COUNT DECREASED [None]
  - MONOCYTE COUNT INCREASED [None]
  - NEUTROPHIL COUNT INCREASED [None]
  - NON-CARDIAC CHEST PAIN [None]
  - URTICARIA [None]
